FAERS Safety Report 6883284-X (Version None)
Quarter: 2010Q3

REPORT INFORMATION
  Report Type: 
  Country: None (occurrence: None)
  Receive Date: 20100727
  Receipt Date: 20080219
  Transmission Date: 20110219
  Serious: Yes (Hospitalization, Other)
  Sender: FDA-Public Use
  Company Number: US-PFIZER INC-2006146915

PATIENT
  Sex: Female
  Weight: 86.2 kg

DRUGS (3)
  1. CELEBREX [Suspect]
     Indication: PAIN
     Route: 048
     Dates: start: 20030801
  2. VIOXX [Suspect]
     Indication: PAIN
     Route: 048
     Dates: start: 20030829
  3. VIOXX [Suspect]
     Indication: ARTICULAR DISC DISORDER

REACTIONS (1)
  - MYOCARDIAL INFARCTION [None]
